FAERS Safety Report 19798487 (Version 2)
Quarter: 2021Q3

REPORT INFORMATION
  Report Type: Spontaneous
  Country: GR (occurrence: GR)
  Receive Date: 20210907
  Receipt Date: 20210915
  Transmission Date: 20211014
  Serious: Yes (Other)
  Sender: FDA-Public Use
  Company Number: GR-ASTRAZENECA-2021A708207

PATIENT
  Age: 78 Year
  Sex: Male

DRUGS (2)
  1. GLAVERAL [Suspect]
     Active Substance: OMEPRAZOLE
     Dosage: IN THE MORNING, WITH AN EMPTY STOMACH
     Route: 065
     Dates: start: 20191205, end: 202105
  2. DUOPLAVIN [Concomitant]
     Active Substance: ASPIRIN\CLOPIDOGREL
     Indication: ARRHYTHMIA PROPHYLAXIS
     Dosage: EVERY AFTERNOON
     Route: 065
     Dates: start: 20191205

REACTIONS (11)
  - Gastric disorder [Not Recovered/Not Resolved]
  - Flatulence [Not Recovered/Not Resolved]
  - Vision blurred [Not Recovered/Not Resolved]
  - Abnormal loss of weight [Not Recovered/Not Resolved]
  - Intestinal polyp [Unknown]
  - Pneumonitis [Unknown]
  - Eosinophilia [Unknown]
  - Diarrhoea [Recovering/Resolving]
  - Asthenia [Not Recovered/Not Resolved]
  - Fatigue [Not Recovered/Not Resolved]
  - Leukopenia [Unknown]

NARRATIVE: CASE EVENT DATE: 202104
